FAERS Safety Report 6135044-5 (Version None)
Quarter: 2009Q1

REPORT INFORMATION
  Report Type: 
  Country: None (occurrence: None)
  Receive Date: 20090325
  Receipt Date: 20090308
  Transmission Date: 20090719
  Serious: Yes (Hospitalization)
  Sender: FDA-Public Use
  Company Number: 2005S1002513

PATIENT
  Age: 61 Year
  Sex: Female
  Weight: 70.3075 kg

DRUGS (3)
  1. PHOSPHOSODA GINGER LEMON [Suspect]
     Indication: COLONOSCOPY
     Dosage: 90 ML; TOTAL; PO
     Route: 048
     Dates: start: 20040809, end: 20040809
  2. WELCHOL [Concomitant]
  3. DIOVAN /01319601/ [Concomitant]

REACTIONS (2)
  - NEPHROCALCINOSIS [None]
  - RENAL FAILURE [None]
